FAERS Safety Report 18737109 (Version 2)
Quarter: 2021Q1

REPORT INFORMATION
  Report Type: Spontaneous
  Country: CN (occurrence: CN)
  Receive Date: 20210113
  Receipt Date: 20210115
  Transmission Date: 20210419
  Serious: Yes (Other)
  Sender: FDA-Public Use
  Company Number: CN-PFIZER INC-2021009967

PATIENT
  Age: 70 Year
  Sex: Female

DRUGS (10)
  1. IRINOTECAN HCL [Suspect]
     Active Substance: IRINOTECAN HYDROCHLORIDE
     Indication: METASTASES TO LIVER
  2. IRINOTECAN HCL [Suspect]
     Active Substance: IRINOTECAN HYDROCHLORIDE
     Indication: OVARIAN CANCER STAGE IV
     Dosage: 120 MG, CYCLIC (DAY 5 EVERY 21 DAYS)(TWO CYCLES)
     Dates: start: 201812, end: 2019
  3. NEDAPLATIN [Suspect]
     Active Substance: NEDAPLATIN
     Indication: METASTASES TO LIVER
  4. IRINOTECAN HCL [Suspect]
     Active Substance: IRINOTECAN HYDROCHLORIDE
     Indication: INTESTINAL METASTASIS
     Dosage: 160 MG, CYCLIC (DAY 1 EVERY 21 DAYS)TWO CYCLES
     Dates: start: 201812, end: 2019
  5. IRINOTECAN HCL [Suspect]
     Active Substance: IRINOTECAN HYDROCHLORIDE
     Indication: METASTASIS
  6. NEDAPLATIN [Suspect]
     Active Substance: NEDAPLATIN
     Indication: METASTASIS
  7. NEDAPLATIN [Suspect]
     Active Substance: NEDAPLATIN
     Indication: INTESTINAL METASTASIS
  8. IRINOTECAN HCL [Suspect]
     Active Substance: IRINOTECAN HYDROCHLORIDE
     Indication: METASTASES TO RETROPERITONEUM
  9. NEDAPLATIN [Suspect]
     Active Substance: NEDAPLATIN
     Indication: OVARIAN CANCER STAGE IV
     Dosage: 40 MG, CYCLIC (DAYS 2?4, EVERY 21 DAYS)(TWO CYCLES)
     Dates: start: 201812, end: 2019
  10. NEDAPLATIN [Suspect]
     Active Substance: NEDAPLATIN
     Indication: METASTASES TO RETROPERITONEUM

REACTIONS (4)
  - Drug intolerance [Unknown]
  - Gastrointestinal disorder [Unknown]
  - Myelosuppression [Unknown]
  - Toxicity to various agents [Unknown]

NARRATIVE: CASE EVENT DATE: 2019
